FAERS Safety Report 16763561 (Version 1)
Quarter: 2019Q3

REPORT INFORMATION
  Report Type: Spontaneous
  Country: US (occurrence: US)
  Receive Date: 20190902
  Receipt Date: 20190902
  Transmission Date: 20191005
  Serious: No
  Sender: FDA-Public Use
  Company Number: US-TEVA-2019-US-1102364

PATIENT
  Age: 63 Year
  Sex: Female

DRUGS (4)
  1. IBUPROFEN. [Suspect]
     Active Substance: IBUPROFEN
     Route: 048
  2. MULTIVITAMIN [Suspect]
     Active Substance: VITAMINS
     Dosage: DAILY
     Route: 048
  3. SODIUM TETRADECYL SULFATE [Suspect]
     Active Substance: SODIUM TETRADECYL SULFATE
     Indication: PERIPHERAL VENOUS DISEASE
     Dosage: 2 SESSIONS 2 WEEKS APART
     Route: 065
  4. CLOTRIMAZOLE/BETAMETHASONE [Suspect]
     Active Substance: BETAMETHASONE\CLOTRIMAZOLE
     Indication: TINEA INFECTION
     Route: 061

REACTIONS (1)
  - Injection site rash [Recovering/Resolving]
